FAERS Safety Report 18620060 (Version 1)
Quarter: 2020Q4

REPORT INFORMATION
  Report Type: Report from Study
  Country: CA (occurrence: CA)
  Receive Date: 20201215
  Receipt Date: 20201215
  Transmission Date: 20210114
  Serious: Yes (Other)
  Sender: FDA-Public Use
  Company Number: CA-BAYER-2020-269855

PATIENT
  Sex: Male

DRUGS (6)
  1. VOLTAREN EMULGEL [Concomitant]
     Active Substance: DICLOFENAC DIETHYLAMINE
     Indication: JUVENILE IDIOPATHIC ARTHRITIS
     Route: 061
  2. INDOMETACIN [Concomitant]
     Active Substance: INDOMETHACIN
  3. INDOMETHACIN AGILA [Concomitant]
     Active Substance: INDOMETHACIN SODIUM
     Indication: JUVENILE IDIOPATHIC ARTHRITIS
  4. NAPROXEN. [Suspect]
     Active Substance: NAPROXEN
     Indication: JUVENILE IDIOPATHIC ARTHRITIS
     Route: 048
  5. DICLOFENAC [Suspect]
     Active Substance: DICLOFENAC
     Indication: JUVENILE IDIOPATHIC ARTHRITIS
  6. DESOXIMETASONE. [Concomitant]
     Active Substance: DESOXIMETASONE
     Indication: JUVENILE IDIOPATHIC ARTHRITIS
     Route: 030

REACTIONS (3)
  - Renal impairment [Unknown]
  - Therapeutic response decreased [Unknown]
  - Pain [Unknown]
